FAERS Safety Report 11950720 (Version 1)
Quarter: 2016Q1

REPORT INFORMATION
  Report Type: Spontaneous
  Country: US (occurrence: None)
  Receive Date: 20160122
  Receipt Date: 20160122
  Transmission Date: 20160526
  Serious: No
  Sender: FDA-Public Use
  Company Number: None

PATIENT
  Age: 41 Year
  Sex: Female

DRUGS (1)
  1. AFINITOR [Suspect]
     Active Substance: EVEROLIMUS
     Indication: BENIGN RENAL NEOPLASM
     Route: 048

REACTIONS (4)
  - Blister [None]
  - Stomatitis [None]
  - Therapy cessation [None]
  - Skin ulcer [None]

NARRATIVE: CASE EVENT DATE: 201512
